FAERS Safety Report 24446097 (Version 1)
Quarter: 2024Q4

REPORT INFORMATION
  Report Type: Spontaneous
  Country: US (occurrence: None)
  Receive Date: 20241016
  Receipt Date: 20241016
  Transmission Date: 20250115
  Serious: No
  Sender: Public
  Company Number: None

PATIENT
  Age: 34 Year
  Sex: Female
  Weight: 77.85 kg

DRUGS (9)
  1. ZEPBOUND [Suspect]
     Active Substance: TIRZEPATIDE
     Indication: Obesity
     Dosage: OTHER QUANTITY : 4 INJECTION(S);?OTHER FREQUENCY : 1 A WEEK;?
     Route: 058
     Dates: start: 20240830, end: 20241011
  2. VENLAFAXINE [Concomitant]
     Active Substance: VENLAFAXINE HYDROCHLORIDE
  3. NORETHINDRONE [Concomitant]
     Active Substance: NORETHINDRONE
  4. QULIPTA [Concomitant]
     Active Substance: ATOGEPANT
  5. MAXALT [Concomitant]
     Active Substance: RIZATRIPTAN BENZOATE
  6. NM-6603 [Concomitant]
     Active Substance: NM-6603
  7. B-2 [Concomitant]
  8. MAGNESIUM [Concomitant]
     Active Substance: MAGNESIUM
  9. VITAMINS [Concomitant]
     Active Substance: VITAMINS

REACTIONS (5)
  - Neuralgia [None]
  - Pain in extremity [None]
  - Neck pain [None]
  - Pain in extremity [None]
  - Pain in extremity [None]

NARRATIVE: CASE EVENT DATE: 20240831
